FAERS Safety Report 6159491-0 (Version None)
Quarter: 2009Q2

REPORT INFORMATION
  Report Type: 
  Country: None (occurrence: None)
  Receive Date: 20090420
  Receipt Date: 20090408
  Transmission Date: 20091009
  Serious: Yes (Hospitalization)
  Sender: FDA-Public Use
  Company Number: GB-RANBAXY-2009RR-23393

PATIENT
  Age: 77 Year
  Sex: Female

DRUGS (8)
  1. ASPIRIN [Suspect]
     Indication: BLOOD PRESSURE INCREASED
     Dosage: 75 MG, UNK
     Route: 048
     Dates: start: 20070801
  2. IBUPROFEN [Suspect]
     Indication: ANALGESIA
     Dosage: 400 MG, UNK
     Route: 048
     Dates: start: 20080408, end: 20090316
  3. CORACTEN XL [Concomitant]
     Dosage: 30 MG, QD
     Route: 065
  4. GAVISCON [Concomitant]
     Route: 065
  5. LEVOTHYROXINE SODIUM [Concomitant]
     Dosage: 175 UG, QD
     Route: 048
  6. OMEPRAZOLE [Concomitant]
     Dosage: 20 MG, QD
     Route: 048
  7. QUININE SULPHATE [Concomitant]
     Dosage: 200 MG, QD
     Route: 048
  8. SIMVASTATIN [Concomitant]
     Dosage: 10 MG, QD
     Route: 065

REACTIONS (1)
  - GASTROINTESTINAL HAEMORRHAGE [None]
